FAERS Safety Report 17441062 (Version 1)
Quarter: 2020Q1

REPORT INFORMATION
  Report Type: Report from Study
  Country: None (occurrence: BR)
  Receive Date: 20200220
  Receipt Date: 20200220
  Transmission Date: 20200409
  Serious: Yes (Hospitalization)
  Sender: FDA-Public Use
  Company Number: BR-ABBVIE-20K-020-3280975-00

PATIENT
  Age: 39 Year
  Sex: Male
  Weight: 91 kg

DRUGS (1)
  1. HUMIRA [Suspect]
     Active Substance: ADALIMUMAB
     Indication: PSORIATIC ARTHROPATHY
     Route: 058
     Dates: start: 20150513

REACTIONS (9)
  - Pancreatic enzymes increased [Unknown]
  - Pain [Unknown]
  - Blood test abnormal [Unknown]
  - Influenza [Recovered/Resolved]
  - Pharyngeal inflammation [Recovered/Resolved]
  - Discomfort [Unknown]
  - Exocrine pancreatic function test abnormal [Recovered/Resolved]
  - Gallbladder oedema [Unknown]
  - Pancreatitis [Recovered/Resolved]

NARRATIVE: CASE EVENT DATE: 2019
